FAERS Safety Report 6925370-1 (Version None)
Quarter: 2010Q3

REPORT INFORMATION
  Report Type: 
  Country: None (occurrence: None)
  Receive Date: 20100816
  Receipt Date: 20100803
  Transmission Date: 20110219
  Serious: Yes (Other)
  Sender: FDA-Public Use
  Company Number: CZ-BAYER-201034710GPV

PATIENT
  Age: 69 Year
  Sex: Male

DRUGS (1)
  1. NEXAVAR [Suspect]
     Indication: RENAL CANCER
     Dosage: UNIT DOSE: 200 MG
     Route: 048
     Dates: start: 20090428, end: 20090609

REACTIONS (2)
  - DERMATITIS EXFOLIATIVE [None]
  - SKIN NECROSIS [None]
